FAERS Safety Report 7381868-6 (Version None)
Quarter: 2011Q1

REPORT INFORMATION
  Report Type: 
  Country: None (occurrence: None)
  Receive Date: 20110329
  Receipt Date: 20110324
  Transmission Date: 20110831
  Serious: Yes (Hospitalization, Other)
  Sender: FDA-Public Use
  Company Number: US-PFIZER INC-2010172727

PATIENT
  Sex: Female

DRUGS (10)
  1. CELEBREX [Concomitant]
     Indication: ARTHRITIS
     Dosage: UNK
     Dates: start: 20040101, end: 20100301
  2. LYRICA [Concomitant]
     Indication: TRIGEMINAL NEURALGIA
     Dosage: UNK
     Dates: start: 20070701
  3. FIORICET [Concomitant]
     Indication: TRIGEMINAL NEURALGIA
     Dosage: UNK
     Dates: start: 19960101, end: 20100501
  4. VICODIN [Concomitant]
     Indication: PAIN
     Dosage: UNK
     Dates: start: 19970101
  5. OXYCODONE [Concomitant]
     Indication: PAIN
     Dosage: UNK
     Dates: start: 20081001, end: 20100301
  6. KEPPRA [Concomitant]
     Indication: CONVULSION
     Dosage: UNK
     Dates: start: 20080201
  7. CYMBALTA [Concomitant]
     Indication: DEPRESSION
     Dosage: UNK
     Dates: start: 20070701, end: 20090901
  8. CHANTIX [Suspect]
     Indication: SMOKING CESSATION THERAPY
     Dosage: UNK
     Dates: start: 20080201, end: 20090501
  9. ATENOLOL [Concomitant]
     Indication: HYPERTENSION
     Dosage: UNK
     Dates: start: 20080901, end: 20100301
  10. DARVOCET [Concomitant]
     Indication: PAIN
     Dosage: UNK
     Dates: start: 19970101, end: 20100901

REACTIONS (4)
  - DEPRESSION [None]
  - SUICIDE ATTEMPT [None]
  - AGGRESSION [None]
  - INTENTIONAL OVERDOSE [None]
